FAERS Safety Report 14952600 (Version 4)
Quarter: 2018Q3

REPORT INFORMATION
  Report Type: Spontaneous
  Country: US (occurrence: US)
  Receive Date: 20180530
  Receipt Date: 20180927
  Transmission Date: 20181010
  Serious: No
  Sender: FDA-Public Use
  Company Number: US-PFIZER INC-2018091813

PATIENT
  Age: 14 Year
  Sex: Male
  Weight: 50.79 kg

DRUGS (1)
  1. GENOTROPIN [Suspect]
     Active Substance: SOMATROPIN
     Indication: GROWTH HORMONE DEFICIENCY
     Dosage: 1.4 MG, ONCE DAILY (NIGHTLY)
     Dates: start: 201707

REACTIONS (4)
  - Polydipsia [Unknown]
  - Arthralgia [Unknown]
  - Polyuria [Unknown]
  - Visual impairment [Unknown]
